FAERS Safety Report 10577081 (Version 2)
Quarter: 2014Q4

REPORT INFORMATION
  Report Type: Spontaneous
  Country: BR (occurrence: BR)
  Receive Date: 20141111
  Receipt Date: 20141117
  Transmission Date: 20150529
  Serious: Yes (Other)
  Sender: FDA-Public Use
  Company Number: BR-GLAXOSMITHKLINE-BR2014GSK018469

PATIENT
  Age: 60 Year
  Sex: Male
  Weight: 90 kg

DRUGS (7)
  1. METFORMIN [Concomitant]
     Active Substance: METFORMIN HYDROCHLORIDE
     Dosage: 1 G, UNK
  2. LOSARTAN [Concomitant]
     Active Substance: LOSARTAN
  3. COMBODART [Suspect]
     Active Substance: DUTASTERIDE\TAMSULOSIN
     Indication: PROSTATOMEGALY
     Dosage: 1 DF, QD
     Dates: start: 20140528
  4. AMPLICTIL [Concomitant]
     Active Substance: CHLORPROMAZINE HYDROCHLORIDE
     Dosage: 100 MG, UNK
  5. ESPIRONOLACTONA [Concomitant]
     Active Substance: SPIRONOLACTONE
  6. DEPAKENE [Concomitant]
     Active Substance: VALPROIC ACID
  7. ATENOLOL. [Concomitant]
     Active Substance: ATENOLOL
     Dosage: 0.25 MG, UNK

REACTIONS (3)
  - Retinal haemorrhage [Unknown]
  - Embolism [Unknown]
  - Visual impairment [Recovering/Resolving]

NARRATIVE: CASE EVENT DATE: 201409
